FAERS Safety Report 5235899-2 (Version None)
Quarter: 2007Q1

REPORT INFORMATION
  Report Type: 
  Country: None (occurrence: None)
  Receive Date: 20061208
  Receipt Date: 20060622
  Transmission Date: 20070707
  Serious: Yes (Other)
  Sender: FDA-Public Use
  Company Number: 2006UW13396

PATIENT
  Age: 53 Year
  Sex: Male

DRUGS (4)
  1. CRESTOR [Suspect]
     Dosage: 10 MG PO
     Route: 048
     Dates: start: 20060401, end: 20060605
  2. NORPACE [Concomitant]
  3. FLORINEF [Concomitant]
  4. TRICOR [Concomitant]

REACTIONS (1)
  - AMNESIA [None]
